FAERS Safety Report 10255833 (Version 1)
Quarter: 2014Q2

REPORT INFORMATION
  Report Type: Spontaneous
  Country: US (occurrence: US)
  Receive Date: 20140624
  Receipt Date: 20140624
  Transmission Date: 20141212
  Serious: No
  Sender: FDA-Public Use
  Company Number: US-ZOGENIX, INC.-2012ZX000004

PATIENT
  Age: 35 Year
  Sex: Female
  Weight: 90.8 kg

DRUGS (4)
  1. SUMAVEL DOSEPRO [Suspect]
     Indication: MIGRAINE
  2. SUMAVEL DOSEPRO [Suspect]
  3. KLONOPIN [Suspect]
     Indication: ANXIETY
     Route: 048
  4. CELEXA [Concomitant]
     Indication: DEPRESSION
     Route: 048

REACTIONS (7)
  - Injection site extravasation [Recovered/Resolved]
  - Injection site induration [Not Recovered/Not Resolved]
  - Drug effect incomplete [Recovered/Resolved]
  - Injection site bruising [Not Recovered/Not Resolved]
  - Palpitations [Recovered/Resolved]
  - Feeling hot [Recovered/Resolved]
  - Injection site pain [Recovered/Resolved]
